FAERS Safety Report 9345284 (Version 1)
Quarter: 2013Q2

REPORT INFORMATION
  Report Type: Spontaneous
  Country: CA (occurrence: CA)
  Receive Date: 20130613
  Receipt Date: 20130613
  Transmission Date: 20140414
  Serious: Yes (Other)
  Sender: FDA-Public Use
  Company Number: CA-ROCHE-1234319

PATIENT
  Age: 49 Year
  Sex: Female

DRUGS (7)
  1. XELODA [Suspect]
     Indication: PRODUCT USED FOR UNKNOWN INDICATION
     Route: 065
  2. TYKERB [Suspect]
     Indication: PRODUCT USED FOR UNKNOWN INDICATION
     Route: 048
  3. CLONAZEPAM [Concomitant]
     Route: 065
  4. EFFEXOR XR [Concomitant]
     Route: 065
  5. MORPHINE [Concomitant]
     Route: 065
  6. STEMETIL [Concomitant]
     Route: 065
  7. VITAMIN B6 [Concomitant]
     Route: 065

REACTIONS (8)
  - Blood bilirubin increased [Not Recovered/Not Resolved]
  - Dermatitis acneiform [Not Recovered/Not Resolved]
  - Diarrhoea [Not Recovered/Not Resolved]
  - Frequent bowel movements [Not Recovered/Not Resolved]
  - Hepatic lesion [Not Recovered/Not Resolved]
  - Insomnia [Not Recovered/Not Resolved]
  - Palmar-plantar erythrodysaesthesia syndrome [Not Recovered/Not Resolved]
  - Rash pruritic [Not Recovered/Not Resolved]
